FAERS Safety Report 9454092 (Version 2)
Quarter: 2014Q1

REPORT INFORMATION
  Report Type: Spontaneous
  Country: US (occurrence: None)
  Receive Date: 20130807
  Receipt Date: 20140124
  Transmission Date: 20141002
  Serious: Yes (Congenital Anomaly)
  Sender: FDA-Public Use
  Company Number: SYM-2013-07783

PATIENT
  Age: 0 Day
  Sex: Male

DRUGS (1)
  1. WELLBUTRIN XL [Suspect]
     Indication: PRODUCT USED FOR UNKNOWN INDICATION
     Route: 064
     Dates: start: 20100602

REACTIONS (8)
  - Congenital diaphragmatic hernia [None]
  - Ventricular septal defect [None]
  - Coarctation of the aorta [None]
  - Hypospadias [None]
  - Maternal drugs affecting foetus [None]
  - Patent ductus arteriosus [None]
  - Caesarean section [None]
  - Chordee [None]
